FAERS Safety Report 21674482 (Version 2)
Quarter: 2023Q1

REPORT INFORMATION
  Report Type: Spontaneous
  Country: US (occurrence: US)
  Receive Date: 20221202
  Receipt Date: 20230127
  Transmission Date: 20230417
  Serious: No
  Sender: FDA-Public Use
  Company Number: US-PFIZER INC-PV202200115089

PATIENT
  Age: 22 Year
  Sex: Male

DRUGS (6)
  1. CIBINQO [Suspect]
     Active Substance: ABROCITINIB
     Indication: Seborrhoeic dermatitis
     Dosage: 100 MG, DAILY
     Route: 048
  2. CIBINQO [Suspect]
     Active Substance: ABROCITINIB
     Indication: Dermatitis
  3. CIBINQO [Suspect]
     Active Substance: ABROCITINIB
     Indication: Impetigo
  4. CIBINQO [Suspect]
     Active Substance: ABROCITINIB
     Indication: Eczema
  5. CIBINQO [Suspect]
     Active Substance: ABROCITINIB
     Indication: Drug therapy
  6. OPZELURA [Suspect]
     Active Substance: RUXOLITINIB PHOSPHATE
     Indication: Eczema
     Dosage: UNK

REACTIONS (2)
  - Rash [Unknown]
  - Off label use [Unknown]
